FAERS Safety Report 19358286 (Version 3)
Quarter: 2021Q3

REPORT INFORMATION
  Report Type: Report from Study
  Country: JP (occurrence: JP)
  Receive Date: 20210601
  Receipt Date: 20210922
  Transmission Date: 20211014
  Serious: Yes (Death, Other)
  Sender: FDA-Public Use
  Company Number: JP-CELLTRION INC.-2021JP007276

PATIENT

DRUGS (21)
  1. CT?P6 [Suspect]
     Active Substance: INVESTIGATIONAL BIOSIMILARS
     Dosage: 300 MG, QD (EVERY ADMINISTRATION)
     Route: 041
     Dates: start: 20200115, end: 20200115
  2. CT?P6 [Suspect]
     Active Substance: INVESTIGATIONAL BIOSIMILARS
     Dosage: 415 MG, QD (EVERY ADMINISTRATION)
     Route: 041
     Dates: start: 20200312, end: 20200312
  3. TEGAFUR/GIMERACIL/OTERACIL POTASSIUM COMBINED DRUG [Suspect]
     Active Substance: GIMERACIL\OTERACIL\TEGAFUR
     Indication: HER2 POSITIVE GASTRIC CANCER
     Dosage: 100 MG, QD (EVERY ADMINISTRATION)
     Route: 048
     Dates: start: 20191114, end: 20191129
  4. CYMBALTA [Concomitant]
     Active Substance: DULOXETINE HYDROCHLORIDE
     Indication: DIABETIC NEUROPATHY
     Dosage: UNK
     Dates: end: 20200409
  5. TEGAFUR/GIMERACIL/OTERACIL POTASSIUM COMBINED DRUG [Suspect]
     Active Substance: GIMERACIL\OTERACIL\TEGAFUR
     Dosage: 100 MG QD (EVERY ADMINISTRATION)
     Route: 048
     Dates: start: 20200409, end: 20200424
  6. AMLODIPINE [Concomitant]
     Active Substance: AMLODIPINE BESYLATE
     Indication: HYPERTENSION
     Dosage: UNK
     Dates: end: 20200409
  7. CISPLATIN. [Concomitant]
     Active Substance: CISPLATIN
     Indication: HER2 POSITIVE GASTRIC CANCER
     Dosage: UNK
     Dates: start: 20191114, end: 20200409
  8. TAKECAB [Concomitant]
     Active Substance: VONOPRAZAN FUMARATE
     Indication: GASTROOESOPHAGEAL REFLUX DISEASE
     Dosage: UNK
     Dates: end: 20200409
  9. CLOPIDOGREL [Concomitant]
     Active Substance: CLOPIDOGREL BISULFATE
     Indication: ANGINA PECTORIS
     Dosage: UNK
     Dates: end: 20200409
  10. TEGAFUR/GIMERACIL/OTERACIL POTASSIUM COMBINED DRUG [Suspect]
     Active Substance: GIMERACIL\OTERACIL\TEGAFUR
     Dosage: 100 MG, QD (EVERY ADMINISTRATION)
     Route: 048
     Dates: start: 20191219, end: 20200103
  11. RANMARK [Concomitant]
     Active Substance: DENOSUMAB
     Indication: METASTASES TO BONE
     Dosage: UNK
     Dates: start: 20191114, end: 20200409
  12. CT?P6 [Suspect]
     Active Substance: INVESTIGATIONAL BIOSIMILARS
     Indication: HER2 POSITIVE GASTRIC CANCER
     Dosage: 415 MG, QD (EVERY ADMINISTRATION)
     Route: 041
     Dates: start: 20191114, end: 20191114
  13. CT?P6 [Suspect]
     Active Substance: INVESTIGATIONAL BIOSIMILARS
     Dosage: 300 MG, QD (EVERY ADMINISTRATION)
     Route: 041
     Dates: start: 20191219, end: 20191219
  14. CT?P6 [Suspect]
     Active Substance: INVESTIGATIONAL BIOSIMILARS
     Dosage: 300 MG, QD (EVERY ADMINISTRATION)
     Route: 041
     Dates: start: 20200213, end: 20200213
  15. CT?P6 [Suspect]
     Active Substance: INVESTIGATIONAL BIOSIMILARS
     Dosage: 300 MG, QD (EVERY ADMINISTRATION)
     Route: 041
     Dates: start: 20200409, end: 20200409
  16. TEGAFUR/GIMERACIL/OTERACIL POTASSIUM COMBINED DRUG [Suspect]
     Active Substance: GIMERACIL\OTERACIL\TEGAFUR
     Dosage: 100 MG, QD (EVERY ADMINISTRATION)
     Route: 048
     Dates: start: 20200115, end: 20200130
  17. TEGAFUR/GIMERACIL/OTERACIL POTASSIUM COMBINED DRUG [Suspect]
     Active Substance: GIMERACIL\OTERACIL\TEGAFUR
     Dosage: 100 MG, QD (EVERY ADMINISTRATION)
     Route: 048
     Dates: start: 20200213, end: 20200228
  18. CANALIA [Concomitant]
     Active Substance: CANAGLIFLOZIN\TENELIGLIPTIN
     Indication: DIABETES MELLITUS
     Dosage: UNK
     Dates: end: 20200409
  19. ATORVASTATIN [Concomitant]
     Active Substance: ATORVASTATIN
     Indication: HYPERLIPIDAEMIA
     Dosage: UNK
     Dates: end: 20200409
  20. TEGAFUR/GIMERACIL/OTERACIL POTASSIUM COMBINED DRUG [Suspect]
     Active Substance: GIMERACIL\OTERACIL\TEGAFUR
     Dosage: 100 MG, QD (EVERY ADMINISTRATION)
     Route: 048
     Dates: start: 20200312, end: 20200327
  21. DENOTAS [Concomitant]
     Active Substance: CALCIUM CARBONATE\CHOLECALCIFEROL\MAGNESIUM CARBONATE
     Indication: PROPHYLAXIS
     Dosage: UNK
     Dates: start: 20191115, end: 20200409

REACTIONS (9)
  - Hiccups [Recovered/Resolved]
  - Constipation [Recovered/Resolved]
  - Overdose [Unknown]
  - HER2 positive gastric cancer [Fatal]
  - Taste disorder [Not Recovered/Not Resolved]
  - Neuropathy peripheral [Not Recovered/Not Resolved]
  - Decreased appetite [Not Recovered/Not Resolved]
  - Off label use [Unknown]
  - Underdose [Unknown]

NARRATIVE: CASE EVENT DATE: 20191122
